FAERS Safety Report 10010817 (Version 1)
Quarter: 2014Q1

REPORT INFORMATION
  Report Type: Spontaneous
  Country: GB (occurrence: None)
  Receive Date: 20140311
  Receipt Date: 20140311
  Transmission Date: 20141002
  Serious: Yes (Hospitalization)
  Sender: FDA-Public Use
  Company Number: AUR-APL-2014-02414

PATIENT
  Age: 78 Year
  Sex: Female

DRUGS (10)
  1. CITALOPRAM [Suspect]
     Indication: DEPRESSION
     Route: 048
     Dates: end: 20131117
  2. ALENDRONIC ACID (ALENDRONIC ACID) [Concomitant]
  3. ASPIRIN (ACETYLSALICYLIC ACID) [Concomitant]
  4. CALCICHEW D3 (LEKOVIT CA) [Concomitant]
  5. CARBOCISTEINE (CARBOCISTEINE) [Concomitant]
  6. FERROUS FUMARATE (FERROUS FUMARATE) [Concomitant]
  7. LINAGLIPTIN (LINAGLIPTIN) [Concomitant]
  8. METFORMIN (METFORMIN) [Concomitant]
  9. SALBUTAMOL (SALBUTAMOL) [Concomitant]
  10. UNIPHYLLIN CONTINUS (THEOPHYLLINE) [Concomitant]

REACTIONS (3)
  - Fall [None]
  - Hyponatraemia [None]
  - Confusional state [None]
